FAERS Safety Report 7348089-4 (Version None)
Quarter: 2011Q1

REPORT INFORMATION
  Report Type: 
  Country: None (occurrence: None)
  Receive Date: 20110302
  Receipt Date: 20090423
  Transmission Date: 20110831
  Serious: Yes (Other)
  Sender: FDA-Public Use
  Company Number: UK-2009-00146

PATIENT
  Age: 62 Year
  Sex: Male

DRUGS (3)
  1. SIMVASTATIN [Suspect]
     Indication: HYPERLIPIDAEMIA
     Dosage: 40 MG (40 MG), ORAL
     Route: 048
     Dates: start: 20090105, end: 20090408
  2. ATORVASTATIN (UNKNOWN) [Concomitant]
  3. HUMAN INSULIN (PRB)/ INSULIN HUMAN (EMP)/ INSULIN HUMAN (PRB)/ INSULIN [Concomitant]

REACTIONS (1)
  - HYPERGLYCAEMIA [None]
